FAERS Safety Report 4698092-8 (Version None)
Quarter: 2005Q2

REPORT INFORMATION
  Report Type: 
  Country: None (occurrence: None)
  Receive Date: 20050623
  Receipt Date: 20050525
  Transmission Date: 20051028
  Serious: Yes (Disabling)
  Sender: FDA-Public Use
  Company Number: PHEH2005US06037

PATIENT
  Age: 29 Year
  Sex: Male

DRUGS (5)
  1. INTERFERON ALFA [Concomitant]
     Indication: CHRONIC MYELOID LEUKAEMIA
     Dosage: 10 UM SQ DAILY
     Dates: start: 20020201, end: 20020506
  2. INTERFERON ALFA [Concomitant]
     Dosage: 2 UM DAILY
  3. GLEEVEC [Suspect]
     Indication: CHRONIC MYELOID LEUKAEMIA
     Dosage: 600 MG, QD
     Route: 048
     Dates: start: 20020601
  4. BACLOFEN [Concomitant]
  5. ARANESP [Concomitant]
     Indication: ANAEMIA
     Dosage: 200 MG SQ WEEKLY
     Dates: start: 20041101

REACTIONS (6)
  - ASTHENIA [None]
  - DIFFICULTY IN WALKING [None]
  - DISTURBANCE IN ATTENTION [None]
  - DIZZINESS [None]
  - GROIN PAIN [None]
  - VISION BLURRED [None]
